FAERS Safety Report 4615340-0 (Version None)
Quarter: 2005Q1

REPORT INFORMATION
  Report Type: 
  Country: None (occurrence: None)
  Receive Date: 20050317
  Receipt Date: 20050303
  Transmission Date: 20050727
  Serious: No
  Sender: FDA-Public Use
  Company Number: 2004AP06070

PATIENT
  Age: 26 Year
  Sex: Female
  Weight: 34.5 kg

DRUGS (1)
  1. MEROPEN [Suspect]
     Indication: PNEUMONIA
     Dosage: 0.5 G DAILY IVD
     Route: 041
     Dates: start: 20020927, end: 20020927

REACTIONS (2)
  - ANAPHYLACTIC SHOCK [None]
  - RESPIRATORY FAILURE [None]
